FAERS Safety Report 24539134 (Version 1)
Quarter: 2024Q4

REPORT INFORMATION
  Report Type: Spontaneous
  Country: IT (occurrence: IT)
  Receive Date: 20241023
  Receipt Date: 20241023
  Transmission Date: 20250115
  Serious: Yes (Hospitalization, Disabling)
  Sender: MYLAN
  Company Number: None

PATIENT
  Age: 56 Year
  Sex: Male
  Weight: 85 kg

DRUGS (3)
  1. METHOTREXATE [Suspect]
     Active Substance: METHOTREXATE
     Indication: Product used for unknown indication
     Dosage: UNK, THE PATIENT RECEIVED INTRATHECAL ADMINISTRATIONS OF THIS DRUG BOTH DURING THE COURSE OF TREATME
     Route: 037
     Dates: start: 2024
  2. DEXAMETHASONE [Concomitant]
     Active Substance: DEXAMETHASONE
     Dosage: UNK, ADMINISTERED INTRATHECALLY IN THE SAME MANEUVER IN WHICH CYTARABINE AND METHOTREXATE WERE
     Route: 037
     Dates: start: 2024
  3. CYTARABINE [Concomitant]
     Active Substance: CYTARABINE
     Dosage: UNK, ADMINISTERED INTRATHECALLY IN THE SAME MANEUVER IN WHICH CYTARABINE AND METHOTREXATE WERE
     Route: 037
     Dates: start: 2024

REACTIONS (5)
  - Psychomotor hyperactivity [Recovered/Resolved with Sequelae]
  - Cognitive disorder [Recovered/Resolved with Sequelae]
  - Vasogenic cerebral oedema [Recovered/Resolved with Sequelae]
  - Leukoplakia [Recovered/Resolved with Sequelae]
  - Confusional state [Recovered/Resolved with Sequelae]

NARRATIVE: CASE EVENT DATE: 20240601
